FAERS Safety Report 13726470 (Version 2)
Quarter: 2017Q3

REPORT INFORMATION
  Report Type: Spontaneous
  Country: US (occurrence: US)
  Receive Date: 20170706
  Receipt Date: 20170929
  Transmission Date: 20171127
  Serious: Yes (Death)
  Sender: FDA-Public Use
  Company Number: US-PFIZER INC-2017290660

PATIENT
  Age: 80 Year
  Sex: Female
  Weight: 81.63 kg

DRUGS (2)
  1. IBRANCE [Suspect]
     Active Substance: PALBOCICLIB
     Indication: BREAST CANCER METASTATIC
     Dosage: 125 MG, CYCLIC (D1-21 Q28 DAYS)
     Route: 048
     Dates: start: 20170316
  2. IBRANCE [Suspect]
     Active Substance: PALBOCICLIB
     Dosage: 125 MG, CYCLIC (D1-21 Q28 DAYS)
     Route: 048
     Dates: end: 201708

REACTIONS (2)
  - Death [Fatal]
  - Rash [Unknown]
